FAERS Safety Report 10734871 (Version 2)
Quarter: 2015Q1

REPORT INFORMATION
  Report Type: Spontaneous
  Country: US (occurrence: US)
  Receive Date: 20150123
  Receipt Date: 20150305
  Transmission Date: 20150721
  Serious: Yes (Death, Hospitalization)
  Sender: FDA-Public Use
  Company Number: US-ACTELION-A-US2014-110321

PATIENT
  Age: 60 Year
  Sex: Male

DRUGS (14)
  1. COUMADIN [Concomitant]
     Active Substance: WARFARIN SODIUM
  2. TRACLEER [Suspect]
     Active Substance: BOSENTAN\BOSENTAN MONOHYDRATE
     Indication: PULMONARY ARTERIAL HYPERTENSION
     Dosage: UNK
     Route: 048
     Dates: end: 20141211
  3. ATENOLOL. [Concomitant]
     Active Substance: ATENOLOL
  4. ZOFRAN [Concomitant]
     Active Substance: ONDANSETRON HYDROCHLORIDE
  5. SILDENAFIL. [Concomitant]
     Active Substance: SILDENAFIL
     Indication: PULMONARY ARTERIAL HYPERTENSION
  6. TYVASO [Concomitant]
     Active Substance: TREPROSTINIL
  7. MILRINONE [Concomitant]
     Active Substance: MILRINONE
  8. BUMEX [Concomitant]
     Active Substance: BUMETANIDE
  9. ACETAZOLAMIDE. [Concomitant]
     Active Substance: ACETAZOLAMIDE
  10. METOLAZONE. [Concomitant]
     Active Substance: METOLAZONE
  11. MORPHINE [Concomitant]
     Active Substance: MORPHINE
  12. NEXIUM [Concomitant]
     Active Substance: ESOMEPRAZOLE MAGNESIUM
  13. SERTRALINE [Concomitant]
     Active Substance: SERTRALINE HYDROCHLORIDE
  14. LORATADINE. [Concomitant]
     Active Substance: LORATADINE

REACTIONS (7)
  - Septic shock [Unknown]
  - Malaise [Unknown]
  - Pulmonary arterial hypertension [Unknown]
  - Hypoxia [Unknown]
  - Condition aggravated [Unknown]
  - Bacteraemia [Unknown]
  - Respiratory failure [Fatal]

NARRATIVE: CASE EVENT DATE: 20150114
